FAERS Safety Report 7365069-3 (Version None)
Quarter: 2011Q1

REPORT INFORMATION
  Report Type: 
  Country: None (occurrence: None)
  Receive Date: 20110311
  Receipt Date: 20110308
  Transmission Date: 20110831
  Serious: Yes (Other)
  Sender: FDA-Public Use
  Company Number: 201110113

PATIENT

DRUGS (2)
  1. LIORESAL [Suspect]
     Indication: MUSCLE SPASTICITY
     Dosage: DAILY, INTRATHECAL
     Route: 037
  2. MORPHINE [Concomitant]

REACTIONS (5)
  - IMPLANT SITE EFFUSION [None]
  - MUSCULAR WEAKNESS [None]
  - DRUG EFFECT DECREASED [None]
  - DEVICE CONNECTION ISSUE [None]
  - ABASIA [None]
